FAERS Safety Report 25151441 (Version 2)
Quarter: 2025Q3

REPORT INFORMATION
  Report Type: Spontaneous
  Country: JP (occurrence: JP)
  Receive Date: 20250402
  Receipt Date: 20250707
  Transmission Date: 20251021
  Serious: Yes (Life-Threatening)
  Sender: MERCK SHARP & DOHME LLC
  Company Number: JP-MSD-M2024-19308

PATIENT
  Age: 24 Year
  Sex: Male
  Weight: 54 kg

DRUGS (19)
  1. CUBICIN [Suspect]
     Active Substance: DAPTOMYCIN
     Indication: Skin infection
     Dosage: DOSE DESCRIPTION : 460 MILLIGRAM, QD?DAILY DOSE : 460 MILLIGRAM?REGIMEN DOSE : 6900  MILLIGRAM
     Route: 041
     Dates: start: 20200909, end: 20200923
  2. NOREPINEPHRINE [Concomitant]
     Active Substance: NOREPINEPHRINE
     Route: 051
  3. PROPOFOL [Concomitant]
     Active Substance: PROPOFOL
     Route: 051
  4. FENTANYL CITRATE [Concomitant]
     Active Substance: FENTANYL CITRATE
     Route: 051
  5. MAXIPIME [Concomitant]
     Active Substance: CEFEPIME HYDROCHLORIDE
     Route: 051
  6. MIDAZOLAM [Concomitant]
     Active Substance: MIDAZOLAM
     Route: 051
  7. SOYBEAN OIL [Concomitant]
     Active Substance: SOYBEAN OIL
     Route: 051
  8. KETALAR [Concomitant]
     Active Substance: KETAMINE HYDROCHLORIDE
     Route: 051
  9. TRAMADOL [Concomitant]
     Active Substance: TRAMADOL
     Route: 048
  10. CELECOXIB [Concomitant]
     Active Substance: CELECOXIB
     Route: 048
  11. BELSOMRA [Concomitant]
     Active Substance: SUVOREXANT
     Route: 048
  12. POTASSIUM GLUCONATE [Concomitant]
     Active Substance: POTASSIUM GLUCONATE
     Route: 048
  13. MIYA-BM [Concomitant]
     Active Substance: CLOSTRIDIUM BUTYRICUM SPORES STRAIN M-55
     Route: 048
  14. BISOPROLOL [Concomitant]
     Active Substance: BISOPROLOL
     Route: 061
  15. QUETIAPINE FUMARATE [Concomitant]
     Active Substance: QUETIAPINE FUMARATE
     Route: 048
  16. NEXIUM [Concomitant]
     Active Substance: ESOMEPRAZOLE MAGNESIUM
     Route: 048
  17. CALONAL [Concomitant]
     Active Substance: ACETAMINOPHEN
     Route: 048
  18. PIPERACILLIN SODIUM\TAZOBACTAM SODIUM [Concomitant]
     Active Substance: PIPERACILLIN SODIUM\TAZOBACTAM SODIUM
     Route: 065
     Dates: start: 20200830
  19. CEFEPIME HYDROCHLORIDE [Concomitant]
     Active Substance: CEFEPIME HYDROCHLORIDE
     Route: 065
     Dates: start: 2020

REACTIONS (3)
  - Drug resistance [Recovering/Resolving]
  - Drug ineffective [Unknown]
  - Overdose [Unknown]

NARRATIVE: CASE EVENT DATE: 20200909
